FAERS Safety Report 23927622 (Version 1)
Quarter: 2024Q2

REPORT INFORMATION
  Report Type: Report from Study
  Country: US (occurrence: US)
  Receive Date: 20240531
  Receipt Date: 20240531
  Transmission Date: 20240715
  Serious: Yes (Hospitalization, Other)
  Sender: FDA-Public Use
  Company Number: US-GLAXOSMITHKLINE-US2024GSK067258

PATIENT

DRUGS (1)
  1. BUPROPION HYDROCHLORIDE [Suspect]
     Active Substance: BUPROPION HYDROCHLORIDE
     Indication: Product used for unknown indication
     Dosage: 13.5 G
     Route: 048

REACTIONS (4)
  - Overdose [Unknown]
  - Seizure [Unknown]
  - Hypotension [Unknown]
  - Tachycardia [Unknown]
